FAERS Safety Report 6211406-2 (Version None)
Quarter: 2009Q2

REPORT INFORMATION
  Report Type: 
  Country: None (occurrence: None)
  Receive Date: 20090602
  Receipt Date: 20090527
  Transmission Date: 20091009
  Serious: Yes (Hospitalization, Other)
  Sender: FDA-Public Use
  Company Number: JP-ELI_LILLY_AND_COMPANY-JP200905005438

PATIENT
  Age: 52 Year
  Sex: Female
  Weight: 45 kg

DRUGS (2)
  1. GEMZAR [Suspect]
     Indication: PANCREATIC CARCINOMA
     Dosage: 1400 MG, OTHER
     Route: 042
     Dates: start: 20070101, end: 20080101
  2. TS 1 [Concomitant]
     Indication: PANCREATIC CARCINOMA
     Dosage: 80 MG, OTHER
     Route: 048
     Dates: start: 20070101, end: 20080101

REACTIONS (3)
  - APPENDICITIS [None]
  - MALIGNANT NEOPLASM PROGRESSION [None]
  - METASTASIS [None]
